FAERS Safety Report 4696898-2 (Version None)
Quarter: 2005Q2

REPORT INFORMATION
  Report Type: 
  Country: None (occurrence: None)
  Receive Date: 20050622
  Receipt Date: 20050613
  Transmission Date: 20051028
  Serious: Yes (Hospitalization)
  Sender: FDA-Public Use
  Company Number: US-JNJFOC-20050603770

PATIENT
  Sex: Female

DRUGS (15)
  1. FENTANYL [Suspect]
     Route: 062
     Dates: start: 20050201
  2. CARDIZEM CD [Concomitant]
     Indication: HYPERTENSION
     Route: 049
     Dates: start: 19990101
  3. DIOVAN [Concomitant]
     Indication: HYPERTENSION
     Route: 049
     Dates: start: 19990101
  4. ZOLOFT [Concomitant]
     Indication: DEPRESSION
     Route: 049
     Dates: start: 20020101
  5. COLACE [Concomitant]
     Route: 049
  6. FUROSEMIDE [Concomitant]
     Indication: DIURETIC THERAPY
     Route: 049
     Dates: start: 20050401
  7. CELEBREX [Concomitant]
     Indication: ANTIINFLAMMATORY THERAPY
     Route: 049
     Dates: start: 20040701
  8. TOPROL-XL [Concomitant]
     Indication: HYPERTENSION
     Route: 049
     Dates: start: 20040701
  9. COUMADIN [Concomitant]
     Indication: THROMBOSIS PROPHYLAXIS
     Dosage: WAS ALSO ON DRUG FOR 5 YEARS PRIOR TO 2000
     Route: 049
     Dates: start: 20010101
  10. ALDACTONE [Concomitant]
     Indication: HYPERTENSION
     Route: 049
     Dates: start: 20050401
  11. SINGULAIR [Concomitant]
     Indication: ASTHMA
     Route: 049
  12. DILANTIN [Concomitant]
     Indication: EPILEPSY
     Route: 049
  13. POTASSIUM CHLORIDE [Concomitant]
     Route: 049
     Dates: start: 20010101
  14. ASPIRIN [Concomitant]
     Indication: PROPHYLAXIS
     Route: 049
  15. SYNTHROID [Concomitant]
     Indication: HYPOTHYROIDISM
     Route: 049
     Dates: start: 20050501

REACTIONS (2)
  - APPLICATION SITE ERYTHEMA [None]
  - CARDIAC FAILURE CONGESTIVE [None]
